FAERS Safety Report 5320143-8 (Version None)
Quarter: 2007Q2

REPORT INFORMATION
  Report Type: 
  Country: None (occurrence: None)
  Receive Date: 20070503
  Receipt Date: 20070425
  Transmission Date: 20071010
  Serious: Yes (Other)
  Sender: FDA-Public Use
  Company Number: 2007SP007910

PATIENT
  Age: 35 Year
  Sex: Female

DRUGS (5)
  1. PEG-INTRON [Suspect]
     Indication: HEPATITIS C
     Dosage: 150 MCG; QW; SC
     Route: 058
     Dates: start: 20060501, end: 20061001
  2. REBETOL [Suspect]
     Indication: HEPATITIS C
     Dosage: 1000 MG; QD; PO
     Route: 048
     Dates: start: 20060501, end: 20061001
  3. VICODIN [Concomitant]
  4. VALTREX [Concomitant]
  5. ADVAIR DISKUS 100/50 [Concomitant]

REACTIONS (8)
  - DRUG EXPOSURE DURING PREGNANCY [None]
  - INTRACARDIAC THROMBUS [None]
  - NASOPHARYNGITIS [None]
  - PREGNANCY [None]
  - PULMONARY THROMBOSIS [None]
  - SINUSITIS [None]
  - THROMBOSIS [None]
  - URINARY TRACT INFECTION [None]
